FAERS Safety Report 4562804-4 (Version None)
Quarter: 2005Q1

REPORT INFORMATION
  Report Type: 
  Country: None (occurrence: None)
  Receive Date: 20050127
  Receipt Date: 20050124
  Transmission Date: 20050727
  Serious: Yes (Life-Threatening, Hospitalization, Other)
  Sender: FDA-Public Use
  Company Number: US-GLAXOSMITHKLINE-A0541969A

PATIENT
  Age: 54 Year
  Sex: Female

DRUGS (6)
  1. EPIVIR [Suspect]
     Indication: HIV INFECTION
     Dosage: 150MG TWICE PER DAY
     Route: 048
     Dates: start: 20000601
  2. D4T [Concomitant]
  3. ZERIT [Concomitant]
  4. CRIXIVAN [Concomitant]
  5. OXYCONTIN [Concomitant]
  6. SOMA [Concomitant]

REACTIONS (1)
  - TORSADE DE POINTES [None]
